FAERS Safety Report 5798230-X (Version None)
Quarter: 2008Q3

REPORT INFORMATION
  Report Type: 
  Country: None (occurrence: None)
  Receive Date: 20080702
  Receipt Date: 20080701
  Transmission Date: 20090109
  Serious: Yes (Hospitalization)
  Sender: FDA-Public Use
  Company Number: Z0000453A

PATIENT
  Age: 72 Year
  Sex: Male
  Weight: 55.5 kg

DRUGS (2)
  1. LAPATINIB [Suspect]
     Indication: NON-SMALL CELL LUNG CANCER
     Dosage: 1500MG PER DAY
     Route: 048
     Dates: start: 20080311
  2. PEMETREXED [Suspect]
     Indication: NON-SMALL CELL LUNG CANCER
     Dosage: 500MGM2 CYCLIC
     Route: 042
     Dates: start: 20080311

REACTIONS (1)
  - PNEUMONIA [None]
